FAERS Safety Report 12599155 (Version 2)
Quarter: 2016Q3

REPORT INFORMATION
  Report Type: Report from Study
  Country: US (occurrence: US)
  Receive Date: 20160727
  Receipt Date: 20160815
  Transmission Date: 20161109
  Serious: Yes (Other)
  Sender: FDA-Public Use
  Company Number: US-VERTEX PHARMACEUTICALS-2016-004497

PATIENT
  Sex: Female

DRUGS (8)
  1. HYPERSAL [Concomitant]
  2. FLONASE [Concomitant]
     Active Substance: FLUTICASONE PROPIONATE
  3. ALBUTEROL. [Concomitant]
     Active Substance: ALBUTEROL
  4. VITAMINS [Concomitant]
     Active Substance: VITAMINS
  5. PULMOZYME [Concomitant]
     Active Substance: DORNASE ALFA
  6. ENZYMES [Concomitant]
  7. ACTIGALL [Concomitant]
     Active Substance: URSODIOL
  8. ORKAMBI [Suspect]
     Active Substance: IVACAFTOR\LUMACAFTOR
     Indication: CYSTIC FIBROSIS
     Dosage: UNK
     Route: 048
     Dates: start: 20160220

REACTIONS (1)
  - Strabismus [Recovered/Resolved]

NARRATIVE: CASE EVENT DATE: 2016
